FAERS Safety Report 9204087 (Version 2)
Quarter: 2013Q3

REPORT INFORMATION
  Report Type: Spontaneous
  Country: US (occurrence: US)
  Receive Date: 20130402
  Receipt Date: 20130718
  Transmission Date: 20140515
  Serious: Yes (Other)
  Sender: FDA-Public Use
  Company Number: US-FRI-1000043677

PATIENT
  Age: 35 Year
  Sex: Female
  Weight: 58 kg

DRUGS (4)
  1. VIIBRYD [Suspect]
     Indication: DEPRESSION
     Dosage: 10MG
     Route: 048
     Dates: start: 20130212, end: 20130218
  2. VIIBRYD [Suspect]
     Dosage: 20MG
     Route: 048
     Dates: start: 20130219, end: 20130225
  3. VIIBRYD [Suspect]
     Indication: DEPRESSION
     Dosage: 40MG
     Route: 048
     Dates: start: 20130226, end: 20130305
  4. VIIBRYD [Suspect]
     Dosage: 20MG
     Route: 048
     Dates: start: 20130306

REACTIONS (2)
  - Suicidal ideation [Recovered/Resolved]
  - Mania [Recovered/Resolved]
